FAERS Safety Report 6495058-2 (Version None)
Quarter: 2009Q4

REPORT INFORMATION
  Report Type: 
  Country: None (occurrence: None)
  Receive Date: 20091214
  Receipt Date: 20090427
  Transmission Date: 20100525
  Serious: No
  Sender: FDA-Public Use
  Company Number: US-BRISTOL-MYERS SQUIBB COMPANY-14601520

PATIENT
  Age: 36 Year
  Sex: Female
  Weight: 93 kg

DRUGS (4)
  1. ABILIFY [Suspect]
     Indication: BIPOLAR DISORDER
     Dates: start: 20090101
  2. LITHIUM [Concomitant]
  3. EFFEXOR XR [Concomitant]
  4. ZANTAC [Concomitant]

REACTIONS (1)
  - BLOOD GLUCOSE INCREASED [None]
